FAERS Safety Report 23483945 (Version 3)
Quarter: 2024Q2

REPORT INFORMATION
  Report Type: Report from Study
  Country: US (occurrence: US)
  Receive Date: 20240205
  Receipt Date: 20240403
  Transmission Date: 20240716
  Serious: Yes (Hospitalization, Other)
  Sender: FDA-Public Use
  Company Number: US-ABBVIE-5618458

PATIENT
  Age: 68 Year
  Sex: Female
  Weight: 65.77 kg

DRUGS (2)
  1. HUMIRA [Suspect]
     Active Substance: ADALIMUMAB
     Indication: Product used for unknown indication
     Route: 058
  2. SKYRIZI [Suspect]
     Active Substance: RISANKIZUMAB-RZAA
     Indication: Psoriasis
     Dosage: FORM STRENGTH: 150MG
     Route: 058
     Dates: start: 20220914

REACTIONS (6)
  - Nasal septum deviation [Unknown]
  - Nasal polyps [Unknown]
  - Night sweats [Not Recovered/Not Resolved]
  - Rhinitis [Unknown]
  - Nasal obstruction [Unknown]
  - Psoriasis [Unknown]

NARRATIVE: CASE EVENT DATE: 20230901
